FAERS Safety Report 5512310-5 (Version None)
Quarter: 2007Q4

REPORT INFORMATION
  Report Type: 
  Country: None (occurrence: None)
  Receive Date: 20071112
  Receipt Date: 20071015
  Transmission Date: 20080405
  Serious: No
  Sender: FDA-Public Use
  Company Number: A0687683A

PATIENT
  Age: 92 Year
  Sex: Female

DRUGS (3)
  1. VERAMYST [Suspect]
     Indication: VERTIGO
     Dosage: 2SPR PER DAY
     Route: 045
     Dates: start: 20070801
  2. VICKS VAPOR RUB [Concomitant]
  3. SODIUM CHLORIDE 0.9% [Concomitant]

REACTIONS (1)
  - THERAPEUTIC RESPONSE UNEXPECTED [None]
